FAERS Safety Report 9276666 (Version 1)
Quarter: 2013Q2

REPORT INFORMATION
  Report Type: Spontaneous
  Country: US (occurrence: US)
  Receive Date: 20130507
  Receipt Date: 20130507
  Transmission Date: 20140414
  Serious: No
  Sender: FDA-Public Use
  Company Number: US-ASTRAZENECA-2013SE26049

PATIENT
  Sex: Male

DRUGS (2)
  1. CRESTOR [Suspect]
     Route: 048
  2. CRESTOR [Suspect]
     Dosage: PATIENT PURCHASED ROVASTN 20 MG ACROSS BORDER IN MEXICO
     Route: 065

REACTIONS (2)
  - Low density lipoprotein increased [Unknown]
  - Blood cholesterol increased [Unknown]
